FAERS Safety Report 8177844-6 (Version None)
Quarter: 2012Q1

REPORT INFORMATION
  Report Type: 
  Country: None (occurrence: None)
  Receive Date: 20120301
  Receipt Date: 20120224
  Transmission Date: 20120608
  Serious: Yes (Hospitalization)
  Sender: FDA-Public Use
  Company Number: FR-MERCK-1202USA04179

PATIENT
  Age: 48 Year
  Sex: Male

DRUGS (4)
  1. TAXOTERE [Suspect]
     Indication: NON-SMALL CELL LUNG CANCER
     Route: 042
     Dates: start: 20110223, end: 20110316
  2. ZOFRAN [Suspect]
     Route: 048
     Dates: start: 20101006, end: 20110320
  3. EMEND [Suspect]
     Route: 048
     Dates: start: 20110316, end: 20110318
  4. PREDNISOLONE [Suspect]
     Route: 048
     Dates: start: 20101006, end: 20110320

REACTIONS (4)
  - RASH [None]
  - OVERDOSE [None]
  - EPIDERMOLYSIS [None]
  - PRURITUS [None]
